FAERS Safety Report 9421722 (Version 1)
Quarter: 2013Q3

REPORT INFORMATION
  Report Type: Spontaneous
  Country: CA (occurrence: CA)
  Receive Date: 20130726
  Receipt Date: 20130726
  Transmission Date: 20140515
  Serious: Yes (Hospitalization)
  Sender: FDA-Public Use
  Company Number: CA-ROCHE-1253289

PATIENT
  Sex: Female

DRUGS (4)
  1. AVASTIN [Suspect]
     Indication: GLIOBLASTOMA
     Route: 042
     Dates: start: 2013, end: 20130516
  2. SYNTHROID [Concomitant]
  3. DEXAMETHASONE [Concomitant]
  4. RADIATION [Concomitant]

REACTIONS (1)
  - Disease progression [Unknown]
